FAERS Safety Report 6731893-0 (Version None)
Quarter: 2010Q2

REPORT INFORMATION
  Report Type: 
  Country: None (occurrence: None)
  Receive Date: 20100517
  Receipt Date: 20100507
  Transmission Date: 20101027
  Serious: Yes (Other)
  Sender: FDA-Public Use
  Company Number: 2010JP002680

PATIENT
  Age: 2 Year
  Sex: Female
  Weight: 11 kg

DRUGS (16)
  1. FUNGUARD (MICAFUNGIN) INJECTION [Suspect]
     Indication: ASPERGILLOSIS
     Dosage: 1 MG/KG, UID/QD, IV DRIP
     Route: 041
     Dates: start: 20080708, end: 20080801
  2. FUNGUARD (MICAFUNGIN) INJECTION [Suspect]
     Indication: CANDIDIASIS
     Dosage: 1 MG/KG, UID/QD, IV DRIP
     Route: 041
     Dates: start: 20080708, end: 20080801
  3. CYCLOPHOSPHAMIDE [Concomitant]
  4. METHOTREXATE [Concomitant]
  5. PROGRAF [Concomitant]
  6. URSO 250 [Concomitant]
  7. POLYMYXIN B SULFATE [Concomitant]
  8. ZOVIRAX [Concomitant]
  9. VENOGLOBULIN-I [Concomitant]
  10. COTRIM [Concomitant]
  11. NEU-UP (NARTOGRASTIM) [Concomitant]
  12. ZANTAC [Concomitant]
  13. PIPERACILLIN SODIUM AND TAZOBACTAM SODIUM [Concomitant]
  14. MAXIPIME [Concomitant]
  15. MINOCYCLINE HCL [Concomitant]
  16. MEROPEN (MEROPENEM TRIHYDRATE) [Concomitant]

REACTIONS (4)
  - ENGRAFTMENT SYNDROME [None]
  - FEBRILE NEUTROPENIA [None]
  - GASTRIC MUCOSAL LESION [None]
  - REFRACTORINESS TO PLATELET TRANSFUSION [None]
